FAERS Safety Report 23948072 (Version 1)
Quarter: 2024Q2

REPORT INFORMATION
  Report Type: Report from Study
  Country: IT (occurrence: IT)
  Receive Date: 20240607
  Receipt Date: 20240607
  Transmission Date: 20240715
  Serious: Yes (Disabling)
  Sender: FDA-Public Use
  Company Number: IT-ABBVIE-5772367

PATIENT
  Age: 73 Year
  Sex: Female

DRUGS (2)
  1. CARBIDOPA\LEVODOPA [Suspect]
     Active Substance: CARBIDOPA\LEVODOPA
     Indication: Parkinson^s disease
     Dosage: DAILY DOSE (MG/DAY): 954; PUMP SETTING: MD: 2,5ML+3ML; CR: 2,6ML/H; ED: 1,8ML
     Route: 050
     Dates: start: 20190416
  2. CARBIDOPA\LEVODOPA [Suspect]
     Active Substance: CARBIDOPA\LEVODOPA

REACTIONS (2)
  - Dementia [Not Recovered/Not Resolved]
  - Cognitive disorder [Unknown]

NARRATIVE: CASE EVENT DATE: 20240501
